FAERS Safety Report 16291186 (Version 1)
Quarter: 2019Q2

REPORT INFORMATION
  Report Type: Report from Study
  Country: US (occurrence: US)
  Receive Date: 20190509
  Receipt Date: 20190509
  Transmission Date: 20190711
  Serious: Yes (Other)
  Sender: FDA-Public Use
  Company Number: US-MYLANLABS-2019M1044956

PATIENT

DRUGS (12)
  1. GUANFACINE. [Suspect]
     Active Substance: GUANFACINE
     Indication: AGGRESSION
  2. SERTRALINE [Suspect]
     Active Substance: SERTRALINE HYDROCHLORIDE
     Indication: ABNORMAL BEHAVIOUR
     Route: 065
  3. ARIPIPRAZOLE. [Suspect]
     Active Substance: ARIPIPRAZOLE
     Indication: AGGRESSION
  4. SERTRALINE [Suspect]
     Active Substance: SERTRALINE HYDROCHLORIDE
     Indication: HYPERAROUSAL
  5. LORAZEPAM. [Suspect]
     Active Substance: LORAZEPAM
     Indication: AGGRESSION
  6. ARIPIPRAZOLE. [Suspect]
     Active Substance: ARIPIPRAZOLE
     Indication: HYPERAROUSAL
  7. ARIPIPRAZOLE. [Suspect]
     Active Substance: ARIPIPRAZOLE
     Indication: ABNORMAL BEHAVIOUR
     Route: 065
  8. SERTRALINE [Suspect]
     Active Substance: SERTRALINE HYDROCHLORIDE
     Indication: AGGRESSION
  9. LORAZEPAM. [Suspect]
     Active Substance: LORAZEPAM
     Indication: ABNORMAL BEHAVIOUR
     Route: 065
  10. GUANFACINE. [Suspect]
     Active Substance: GUANFACINE
     Indication: HYPERAROUSAL
  11. LORAZEPAM. [Suspect]
     Active Substance: LORAZEPAM
     Indication: HYPERAROUSAL
  12. GUANFACINE. [Suspect]
     Active Substance: GUANFACINE
     Indication: ABNORMAL BEHAVIOUR
     Dosage: EXTENDED RELEASE
     Route: 065

REACTIONS (3)
  - Drug ineffective [Unknown]
  - Agoraphobia [Unknown]
  - Agitation [Unknown]
